FAERS Safety Report 9880909 (Version 1)
Quarter: 2014Q1

REPORT INFORMATION
  Report Type: Spontaneous
  Country: US (occurrence: None)
  Receive Date: 20140206
  Receipt Date: 20140206
  Transmission Date: 20141002
  Serious: No
  Sender: FDA-Public Use
  Company Number: None

PATIENT
  Age: 67 Year
  Sex: Male
  Weight: 69 kg

DRUGS (2)
  1. MYCOPHENOLATE MOFETIL [Suspect]
     Indication: CHRONIC GRAFT VERSUS HOST DISEASE
     Route: 048
     Dates: start: 201306, end: 201312
  2. SIROLIMUS [Suspect]
     Indication: CHRONIC GRAFT VERSUS HOST DISEASE
     Dosage: 0.5 MG TO 2 MG ONCE DAILY PO
     Route: 048

REACTIONS (1)
  - Progressive multifocal leukoencephalopathy [None]
